FAERS Safety Report 7324582-5 (Version None)
Quarter: 2011Q1

REPORT INFORMATION
  Report Type: 
  Country: None (occurrence: None)
  Receive Date: 20110301
  Receipt Date: 20110224
  Transmission Date: 20110831
  Serious: Yes (Other)
  Sender: FDA-Public Use
  Company Number: US-PFIZER INC-2011027773

PATIENT
  Sex: Female

DRUGS (1)
  1. XANAX [Suspect]
     Dosage: UNK

REACTIONS (5)
  - DRUG ABUSE [None]
  - AMNESIA [None]
  - HYPERHIDROSIS [None]
  - OPTIC NERVE DISORDER [None]
  - HEADACHE [None]
